FAERS Safety Report 12378100 (Version 1)
Quarter: 2016Q2

REPORT INFORMATION
  Report Type: Report from Study
  Country: US (occurrence: US)
  Receive Date: 20160517
  Receipt Date: 20160517
  Transmission Date: 20160815
  Serious: No
  Sender: FDA-Public Use
  Company Number: US-MALLINCKRODT-T201600563

PATIENT
  Sex: Female

DRUGS (2)
  1. REPOSITORY CORTICOTROPIN INJECTION [Suspect]
     Active Substance: CORTICOTROPIN
     Indication: SYSTEMIC LUPUS ERYTHEMATOSUS
     Dosage: 80U 2X/WEEK
     Route: 058
     Dates: start: 20151020
  2. PREDNISONE. [Concomitant]
     Active Substance: PREDNISONE
     Dosage: 5 MG DAILY
     Route: 065

REACTIONS (3)
  - Injection site bruising [Recovering/Resolving]
  - Skin sensitisation [Not Recovered/Not Resolved]
  - Injection site discolouration [Not Recovered/Not Resolved]
